FAERS Safety Report 8835307 (Version 1)
Quarter: 2012Q4

REPORT INFORMATION
  Report Type: Report from Study
  Country: DE (occurrence: DE)
  Receive Date: 20121011
  Receipt Date: 20121011
  Transmission Date: 20130627
  Serious: Yes (Hospitalization)
  Sender: FDA-Public Use
  Company Number: DE-ROCHE-1143540

PATIENT
  Sex: Female
  Weight: 64 kg

DRUGS (5)
  1. AVASTIN [Suspect]
     Indication: OVARIAN CANCER
     Dosage: LAST DOSE PRIOR TO EVENT 14/Sep/2012
     Route: 042
     Dates: start: 20120914
  2. DEXAMETHASONE [Suspect]
     Indication: OVARIAN CANCER
     Dosage: LAST DOSE PRIOR TO EVENT 16/Sep/2012
     Route: 048
     Dates: start: 20120914
  3. OMEPRAZOLE [Suspect]
     Indication: OVARIAN CANCER
     Dosage: LAST DOSE PRIOR TO EVENT 26/Sep/2012
     Route: 048
     Dates: start: 20120914
  4. PACLITAXEL [Suspect]
     Indication: OVARIAN CANCER
     Dosage: LAST DOSE PRIOR TO EVENT 14/Sep/2012
     Route: 042
     Dates: start: 20120914
  5. CARBOPLATIN [Suspect]
     Indication: OVARIAN CANCER
     Dosage: LAST DOSE PRIOR TO EVENT 14/Sep/2012
     Route: 042
     Dates: start: 20120914

REACTIONS (3)
  - Thrombosis [Recovering/Resolving]
  - Arthralgia [Recovering/Resolving]
  - Joint swelling [Recovering/Resolving]
